FAERS Safety Report 17493976 (Version 2)
Quarter: 2020Q1

REPORT INFORMATION
  Report Type: Spontaneous
  Country: ES (occurrence: ES)
  Receive Date: 20200304
  Receipt Date: 20200325
  Transmission Date: 20200409
  Serious: Yes (Other)
  Sender: FDA-Public Use
  Company Number: ES-ELI_LILLY_AND_COMPANY-ES202002010839

PATIENT
  Sex: Female

DRUGS (1)
  1. EMGALITY [Suspect]
     Active Substance: GALCANEZUMAB-GNLM
     Indication: PRODUCT USED FOR UNKNOWN INDICATION
     Dosage: 2 DOSAGE FORM, UNKNOWN
     Route: 065
     Dates: start: 20191218, end: 202001

REACTIONS (4)
  - Crying [Unknown]
  - Mixed anxiety and depressive disorder [Unknown]
  - Suicidal behaviour [Unknown]
  - Mood altered [Unknown]

NARRATIVE: CASE EVENT DATE: 20200214
